FAERS Safety Report 15215840 (Version 1)
Quarter: 2018Q4

REPORT INFORMATION
  Report Type: Spontaneous
  Country: US (occurrence: US)
  Receive Date: 20180730
  Receipt Date: 20180730
  Transmission Date: 20190204
  Serious: Yes (Other)
  Sender: FDA-Public Use
  Company Number: US-PROCTER+GAMBLE-GS18086875

PATIENT
  Age: 31 Year
  Sex: Male

DRUGS (1)
  1. BISMUTH SUBSALICYLATE, UNSPECIFIED [Suspect]
     Active Substance: BISMUTH SUBSALICYLATE
     Route: 048

REACTIONS (4)
  - Abdominal tenderness [Recovering/Resolving]
  - Discomfort [Recovering/Resolving]
  - Abdominal pain [Recovering/Resolving]
  - Computerised tomogram abnormal [Unknown]
